FAERS Safety Report 7901166-9 (Version None)
Quarter: 2011Q4

REPORT INFORMATION
  Report Type: 
  Country: None (occurrence: None)
  Receive Date: 20111108
  Receipt Date: 20111104
  Transmission Date: 20120403
  Serious: Yes (Other)
  Sender: FDA-Public Use
  Company Number: US-PFIZER INC-2007069359

PATIENT
  Sex: Female
  Weight: 81.8 kg

DRUGS (6)
  1. HYZAAR [Concomitant]
     Indication: HYPERTENSION
  2. ATENOLOL [Concomitant]
     Indication: HYPERTENSION
  3. METFORMIN [Concomitant]
  4. XALATAN [Suspect]
     Indication: GLAUCOMA
     Dosage: 1 GTT, UNK
     Dates: start: 20040101
  5. GLYBURIDE [Concomitant]
  6. POTASSIUM [Concomitant]

REACTIONS (3)
  - VISUAL ACUITY REDUCED [None]
  - ASTHENOPIA [None]
  - SINUS DISORDER [None]
